FAERS Safety Report 7556888-9 (Version None)
Quarter: 2011Q2

REPORT INFORMATION
  Report Type: 
  Country: None (occurrence: None)
  Receive Date: 20110620
  Receipt Date: 20110610
  Transmission Date: 20111010
  Serious: Yes (Other)
  Sender: FDA-Public Use
  Company Number: US-NOVOPROD-329871

PATIENT
  Sex: Female
  Weight: 122 kg

DRUGS (3)
  1. LANTUS [Suspect]
     Indication: TYPE 2 DIABETES MELLITUS
     Dosage: 40 U, IN AM
     Route: 058
     Dates: start: 20100101
  2. NOVOLOG [Suspect]
     Indication: TYPE 2 DIABETES MELLITUS
     Dosage: 25 U, TID
     Route: 058
  3. LANTUS [Suspect]
     Dosage: 18 U IN PM
     Route: 058
     Dates: start: 20100101

REACTIONS (6)
  - CATARACT [None]
  - HYPOGLYCAEMIC SEIZURE [None]
  - GLOSSODYNIA [None]
  - BRONCHITIS [None]
  - MUSCULOSKELETAL PAIN [None]
  - PAIN IN EXTREMITY [None]
